FAERS Safety Report 7773381-9 (Version None)
Quarter: 2011Q3

REPORT INFORMATION
  Report Type: 
  Country: None (occurrence: None)
  Receive Date: 20110922
  Receipt Date: 20110913
  Transmission Date: 20111222
  Serious: No
  Sender: FDA-Public Use
  Company Number: US-B.I. PHARMACEUTICALS,INC./RIDGEFIELD-2011-BP-22198BP

PATIENT
  Sex: Female

DRUGS (11)
  1. ALBUTEROL [Concomitant]
     Indication: CHRONIC OBSTRUCTIVE PULMONARY DISEASE
  2. SPIRONOLACTONE [Concomitant]
     Indication: RENAL DISORDER
     Route: 048
  3. ALPRAZOLAM [Concomitant]
     Indication: ANXIETY
     Route: 048
  4. THYROID TAB [Concomitant]
     Indication: HYPOTHYROIDISM
     Route: 048
  5. NEXIUM [Concomitant]
     Indication: GASTROOESOPHAGEAL REFLUX DISEASE
     Route: 048
  6. PLAVIX [Concomitant]
     Indication: CARDIAC DISORDER
     Route: 048
  7. SPIRIVA [Suspect]
     Indication: CHRONIC OBSTRUCTIVE PULMONARY DISEASE
     Dosage: 18 MCG
     Route: 055
     Dates: start: 20110904
  8. DIGOXIN [Concomitant]
     Indication: CARDIAC DISORDER
     Route: 048
  9. IPRATROPIUM BROMIDE [Concomitant]
     Indication: CHRONIC OBSTRUCTIVE PULMONARY DISEASE
  10. METOPROLOL [Concomitant]
     Indication: HYPERTENSION
     Route: 048
  11. BUMEX [Concomitant]
     Indication: RENAL DISORDER
     Route: 048

REACTIONS (6)
  - SWOLLEN TONGUE [None]
  - HEADACHE [None]
  - DYSPNOEA [None]
  - TONGUE DISCOLOURATION [None]
  - OROPHARYNGEAL PAIN [None]
  - EYE PAIN [None]
